FAERS Safety Report 5010241-0 (Version None)
Quarter: 2006Q2

REPORT INFORMATION
  Report Type: 
  Country: None (occurrence: None)
  Receive Date: 20060404
  Receipt Date: 20051130
  Transmission Date: 20061013
  Serious: No
  Sender: FDA-Public Use
  Company Number: US200511003421

PATIENT
  Age: 80 Year
  Sex: Female

DRUGS (1)
  1. CYMBALTA [Suspect]

REACTIONS (1)
  - SOMNOLENCE [None]
